FAERS Safety Report 14764462 (Version 1)
Quarter: 2018Q2

REPORT INFORMATION
  Report Type: Spontaneous
  Country: US (occurrence: US)
  Receive Date: 20180416
  Receipt Date: 20180416
  Transmission Date: 20180711
  Serious: Yes (Disabling, Other)
  Sender: FDA-Public Use
  Company Number: US-SA-2018SA106752

PATIENT
  Age: 67 Year
  Sex: Female

DRUGS (3)
  1. KLONOPIN [Concomitant]
     Active Substance: CLONAZEPAM
  2. SOLOSTAR [Suspect]
     Active Substance: DEVICE
  3. LANTUS SOLOSTAR [Suspect]
     Active Substance: INSULIN GLARGINE
     Indication: TYPE 2 DIABETES MELLITUS
     Dosage: DOSE:35 UNIT(S)
     Route: 051

REACTIONS (8)
  - Disability [Unknown]
  - Drug dose omission [Unknown]
  - Sleep apnoea syndrome [Unknown]
  - Heart rate decreased [Unknown]
  - Tremor [Unknown]
  - Fall [Unknown]
  - Fine motor skill dysfunction [Unknown]
  - Injury associated with device [Unknown]
